FAERS Safety Report 25972960 (Version 1)
Quarter: 2025Q4

REPORT INFORMATION
  Report Type: Spontaneous
  Country: US (occurrence: US)
  Receive Date: 20251029
  Receipt Date: 20251029
  Transmission Date: 20260118
  Serious: No
  Sender: BRISTOL-MYERS SQUIBB COMPANY
  Company Number: US-BRISTOL-MYERS SQUIBB COMPANY-2025-146653

PATIENT
  Age: 59 Year

DRUGS (2)
  1. OPDIVO [Suspect]
     Active Substance: NIVOLUMAB
     Indication: Product used for unknown indication
     Dosage: STRENGTH: 195MG/70MG Q 3 WEEKS DOSE: [2] 100MG/[2] 50MG; OPDIVO: [2] 100MG
     Route: 042
     Dates: end: 20251024
  2. YERVOY [Suspect]
     Active Substance: IPILIMUMAB
     Indication: Product used for unknown indication
     Dosage: STRENGTH: 195MG/70MG Q 3 WEEKS DOSE: [2] 100MG/[2] 50MG; YERVOY: [2] 50MG
     Dates: end: 20251024

REACTIONS (1)
  - Off label use [Unknown]
